FAERS Safety Report 15969085 (Version 3)
Quarter: 2020Q3

REPORT INFORMATION
  Report Type: Report from Study
  Country: DE (occurrence: DE)
  Receive Date: 20190215
  Receipt Date: 20200803
  Transmission Date: 20201102
  Serious: Yes (Other)
  Sender: FDA-Public Use
  Company Number: DE-JNJFOC-20190209453

PATIENT
  Age: 7 Decade
  Sex: Female

DRUGS (3)
  1. SIMPONI [Suspect]
     Active Substance: GOLIMUMAB
     Indication: RHEUMATOID ARTHRITIS
     Route: 058
     Dates: start: 201601, end: 201603
  2. METHOTREXATE. [Suspect]
     Active Substance: METHOTREXATE
     Indication: PRODUCT USED FOR UNKNOWN INDICATION
     Dosage: 5, 7.5
     Route: 065
  3. BENEPALI [Concomitant]
     Active Substance: ETANERCEPT
     Dates: start: 201810, end: 201904

REACTIONS (6)
  - Diarrhoea [Unknown]
  - Depression [Unknown]
  - Cerebellar infarction [Unknown]
  - Vomiting [Unknown]
  - Panic disorder [Unknown]
  - Basal cell carcinoma [Unknown]

NARRATIVE: CASE EVENT DATE: 20180306
